FAERS Safety Report 5616702-5 (Version None)
Quarter: 2008Q1

REPORT INFORMATION
  Report Type: 
  Country: None (occurrence: None)
  Receive Date: 20080207
  Receipt Date: 20080123
  Transmission Date: 20080703
  Serious: Yes (Death, Other)
  Sender: FDA-Public Use
  Company Number: CA-JNJFOC-20071107711

PATIENT
  Sex: Female

DRUGS (29)
  1. REMICADE [Suspect]
     Route: 042
  2. REMICADE [Suspect]
     Route: 042
  3. REMICADE [Suspect]
     Route: 042
  4. REMICADE [Suspect]
     Route: 042
  5. REMICADE [Suspect]
     Route: 042
  6. REMICADE [Suspect]
     Dosage: 29TH INFUSION: DATE UNKNOWN
     Route: 042
  7. REMICADE [Suspect]
     Route: 042
  8. REMICADE [Suspect]
     Route: 042
  9. REMICADE [Suspect]
     Route: 042
  10. REMICADE [Suspect]
     Route: 042
  11. REMICADE [Suspect]
     Route: 042
  12. REMICADE [Suspect]
     Route: 042
  13. REMICADE [Suspect]
     Dosage: 6TH TO 22ND INFUSIONS: DATES UNKNOWN
     Route: 042
  14. REMICADE [Suspect]
     Route: 042
  15. REMICADE [Suspect]
     Route: 042
  16. REMICADE [Suspect]
     Route: 042
  17. REMICADE [Suspect]
     Route: 042
  18. REMICADE [Suspect]
     Indication: CROHN'S DISEASE
     Route: 042
  19. METHOTREXATE [Concomitant]
     Route: 048
  20. ZANTAC [Concomitant]
     Route: 048
  21. TAPAZOLE [Concomitant]
  22. CALCIUM GLUCONATE [Concomitant]
  23. FOLIC ACID [Concomitant]
  24. AMITRIPTYLINE HCL [Concomitant]
  25. VITAMIN B-12 [Concomitant]
     Route: 030
  26. CHOLESTYRAMINE [Concomitant]
  27. LASIX [Concomitant]
  28. ALDACTONE [Concomitant]
  29. URSO 250 [Concomitant]

REACTIONS (13)
  - ASCITES [None]
  - BRONCHITIS [None]
  - DEATH [None]
  - EAR INFECTION [None]
  - HEPATIC CIRRHOSIS [None]
  - HOSPITALISATION [None]
  - LIVER FUNCTION TEST ABNORMAL [None]
  - OEDEMA PERIPHERAL [None]
  - PERITONITIS BACTERIAL [None]
  - PNEUMONIA [None]
  - PRURITUS [None]
  - SINUSITIS [None]
  - SKIN DISORDER [None]
